FAERS Safety Report 24095540 (Version 1)
Quarter: 2024Q3

REPORT INFORMATION
  Report Type: Spontaneous
  Country: US (occurrence: US)
  Receive Date: 20240716
  Receipt Date: 20240716
  Transmission Date: 20241016
  Serious: No
  Sender: APPCO PHARMA
  Company Number: US-Appco Pharma LLC-2159163

PATIENT
  Sex: Male

DRUGS (1)
  1. MODAFINIL [Suspect]
     Active Substance: MODAFINIL
     Indication: Product used for unknown indication
     Route: 065

REACTIONS (3)
  - Sinonasal obstruction [Unknown]
  - Headache [Unknown]
  - Head discomfort [Unknown]
